FAERS Safety Report 9519934 (Version 2)
Quarter: 2013Q4

REPORT INFORMATION
  Report Type: Spontaneous
  Country: FR (occurrence: FR)
  Receive Date: 20130912
  Receipt Date: 20131025
  Transmission Date: 20140711
  Serious: Yes (Death, Life-Threatening, Hospitalization)
  Sender: FDA-Public Use
  Company Number: FR-ASTRAZENECA-2013SE67508

PATIENT
  Age: 15102 Day
  Sex: Female

DRUGS (56)
  1. INEXIUM [Suspect]
     Route: 042
     Dates: start: 20130709, end: 20130812
  2. SEROPLEX [Suspect]
     Route: 048
     Dates: start: 20130721
  3. PERFALGAN [Suspect]
     Route: 042
     Dates: start: 20130710, end: 20130812
  4. ULTIVA [Suspect]
     Dosage: 2400 GBQ (100 GBQ PER HOUR)
     Route: 042
     Dates: start: 20130714, end: 20130717
  5. FORTUM [Suspect]
     Route: 042
     Dates: start: 20130621, end: 20130809
  6. FLAGYL [Suspect]
     Route: 048
     Dates: start: 20130712, end: 20130812
  7. GENTAMICINE PANPHARMA [Suspect]
     Route: 042
     Dates: start: 20130809, end: 20130811
  8. NOXAFIL [Suspect]
     Route: 048
     Dates: start: 20130619, end: 20130708
  9. CANCIDAS [Suspect]
     Route: 042
     Dates: start: 20130709, end: 20130709
  10. AMBISOME [Suspect]
     Route: 042
     Dates: start: 20130709, end: 20130811
  11. BACTRIM [Suspect]
     Route: 042
     Dates: start: 20130724, end: 20130809
  12. ACIDE FOLINIQUE [Suspect]
     Route: 042
     Dates: start: 20130724, end: 20130809
  13. ZELITREX [Suspect]
     Route: 042
     Dates: start: 20130709, end: 20130812
  14. CYMEVAN [Suspect]
     Route: 042
     Dates: start: 20130726, end: 20130812
  15. FOSCAVIR [Suspect]
     Dosage: 6G/250ML, 1 DF TWO TIMES A DAY
     Route: 042
     Dates: start: 20130808
  16. CLAIRYG [Suspect]
     Route: 042
  17. GRANOCYTE [Suspect]
     Route: 042
     Dates: start: 20130807
  18. HEPARINE SODIQUE [Suspect]
     Route: 042
     Dates: start: 20130605
  19. SPASFON [Suspect]
     Route: 042
     Dates: start: 20130619
  20. DELURSAN [Suspect]
     Route: 048
     Dates: start: 20130605, end: 20130708
  21. DEFIBROTIDE [Suspect]
     Dosage: 25 MG/KG EVERY DAY
     Route: 042
     Dates: start: 20130605, end: 20130812
  22. LARGACTIL [Suspect]
     Route: 042
     Dates: start: 20130619, end: 20130709
  23. TRANXENE [Suspect]
     Dosage: 5 MG FOUR TIMES A DAY, ON DEMAND
     Route: 048
     Dates: start: 20130622, end: 20130709
  24. OXYNORM [Suspect]
     Route: 042
     Dates: start: 20130619
  25. EXACYL [Suspect]
     Route: 042
     Dates: start: 20130727, end: 20130812
  26. SOLUMEDROL [Suspect]
     Route: 042
     Dates: start: 20130709
  27. DROLEPTAN [Suspect]
     Route: 042
     Dates: start: 20130712, end: 20130717
  28. ATARAX [Suspect]
     Route: 048
     Dates: start: 20130714
  29. LASILIX [Suspect]
     Route: 042
     Dates: start: 20130716, end: 20130809
  30. CERIS [Suspect]
     Route: 048
     Dates: start: 20130807
  31. NOCTAMIDE [Suspect]
     Dates: start: 20130605, end: 20130708
  32. NOCTAMIDE [Suspect]
     Route: 048
  33. GENTAMICINE + COLISTINE [Concomitant]
     Indication: ANTIBIOTIC THERAPY
     Dates: start: 20130605, end: 20130708
  34. VANCOMYCINE MYLAN [Concomitant]
     Dates: start: 20130605, end: 20130709
  35. CIFLOX [Concomitant]
     Dates: start: 20130621, end: 20130712
  36. TARGOCID [Concomitant]
     Dates: start: 20130710
  37. MYCOSTATINE [Concomitant]
     Dosage: 2 FLASKS A DAY
     Dates: start: 20130605, end: 20130619
  38. TRIFLUCAN [Concomitant]
     Dates: start: 20130605, end: 20130618
  39. ZOVIRAX [Concomitant]
     Dates: start: 20130605, end: 20130709
  40. METHOTREXATE [Concomitant]
     Indication: BONE MARROW CONDITIONING REGIMEN
     Dates: start: 20130605, end: 20130619
  41. METHOTREXATE [Concomitant]
     Indication: BONE MARROW CONDITIONING REGIMEN
     Dosage: MYLAN
  42. ELVORINE [Concomitant]
     Dates: start: 20130605, end: 20130619
  43. SANDIMMUN [Concomitant]
     Dates: start: 20130614, end: 20130708
  44. MOPRAL [Concomitant]
     Dates: start: 20130605, end: 20130618
  45. OGASTORO [Concomitant]
     Dates: start: 20130619, end: 20130708
  46. GELOX [Concomitant]
     Dosage: 1 SACHET THREE TIMES A DAY
     Dates: start: 20130605, end: 20130708
  47. SMECTA [Concomitant]
     Dosage: 6 SACHETS EVERY DAY
     Dates: start: 20130620, end: 20130708
  48. LUTERAN [Concomitant]
     Dates: start: 20130605, end: 20130708
  49. LEXOMIL [Concomitant]
     Dates: start: 20130605, end: 20130708
  50. ZOPHREN [Concomitant]
     Dosage: 2 BULBS EVERY DAY
     Dates: start: 20130605, end: 20130708
  51. PRIMPERAN [Concomitant]
     Dosage: 6 BULBS EVERY DAY
     Dates: start: 20130620, end: 20130709
  52. ACUPAN [Concomitant]
     Dosage: 6 AMPS EVERY DAY, ON DEMAND
     Dates: start: 20130620, end: 20130709
  53. TIORFAN [Concomitant]
     Dates: start: 20130622, end: 20130708
  54. LEVOCARNIL [Concomitant]
     Dates: start: 20130709, end: 20130714
  55. ENDOXAN [Concomitant]
     Indication: BONE MARROW CONDITIONING REGIMEN
  56. BUSULVEX [Concomitant]
     Indication: BONE MARROW CONDITIONING REGIMEN

REACTIONS (5)
  - Multi-organ failure [Fatal]
  - Renal failure acute [Unknown]
  - Hepatitis fulminant [Unknown]
  - General physical health deterioration [Not Recovered/Not Resolved]
  - Toxic epidermal necrolysis [Not Recovered/Not Resolved]
